FAERS Safety Report 10426436 (Version 1)
Quarter: 2014Q3

REPORT INFORMATION
  Report Type: Spontaneous
  Country: US (occurrence: US)
  Receive Date: 20140903
  Receipt Date: 20140903
  Transmission Date: 20150326
  Serious: No
  Sender: FDA-Public Use
  Company Number: US-PFIZER INC-2014242935

PATIENT
  Age: 18 Year
  Sex: Female
  Weight: 58.96 kg

DRUGS (2)
  1. DEPO-PROVERA [Concomitant]
     Active Substance: MEDROXYPROGESTERONE ACETATE
     Indication: CONTRACEPTION
     Dosage: UNK,EVERY 3 MONTHS
  2. ADVIL MIGRAINE [Suspect]
     Active Substance: IBUPROFEN
     Indication: TOOTHACHE
     Dosage: 3 CAPSULES, SINGLE
     Dates: start: 20140831, end: 20140831

REACTIONS (4)
  - Intentional product misuse [Unknown]
  - Expired product administered [Unknown]
  - Abdominal pain upper [Unknown]
  - Overdose [Unknown]

NARRATIVE: CASE EVENT DATE: 20140831
